FAERS Safety Report 9679992 (Version 3)
Quarter: 2014Q1

REPORT INFORMATION
  Report Type: Spontaneous
  Country: GB (occurrence: GB)
  Receive Date: 20131110
  Receipt Date: 20140129
  Transmission Date: 20141002
  Serious: Yes (Other)
  Sender: FDA-Public Use
  Company Number: PHHY2013GB126100

PATIENT
  Age: 35 Year
  Sex: Female
  Weight: 50.8 kg

DRUGS (3)
  1. TEGRETOL RETARD [Suspect]
     Indication: COMPLEX PARTIAL SEIZURES
     Dosage: 200 MG, BID
     Route: 048
     Dates: start: 1989, end: 2010
  2. TEGRETOL [Suspect]
     Indication: COMPLEX PARTIAL SEIZURES
     Dosage: 200 MG, BID
     Route: 048
     Dates: start: 19960910, end: 20090210
  3. TEGRETOL [Suspect]
     Indication: EPILEPSY

REACTIONS (4)
  - Gastrooesophageal reflux disease [Recovered/Resolved]
  - Dyspepsia [Recovered/Resolved]
  - Burn oesophageal [Unknown]
  - Abdominal pain [Unknown]
